FAERS Safety Report 7364951-0 (Version None)
Quarter: 2011Q1

REPORT INFORMATION
  Report Type: 
  Country: None (occurrence: None)
  Receive Date: 20110321
  Receipt Date: 20110314
  Transmission Date: 20110831
  Serious: Yes (Other)
  Sender: FDA-Public Use
  Company Number: US-SANOFI-AVENTIS-2011SA016079

PATIENT
  Sex: Female

DRUGS (3)
  1. SOLOSTAR [Suspect]
     Indication: TYPE 1 DIABETES MELLITUS
     Dates: start: 20070101
  2. NOVOLOG [Concomitant]
  3. LANTUS [Suspect]
     Indication: TYPE 1 DIABETES MELLITUS
     Dosage: 10 UNITS IN THE MORNING AND 4 UNITS IN THE EVENING
     Route: 058
     Dates: start: 20070101

REACTIONS (1)
  - MACULOPATHY [None]
